FAERS Safety Report 8379835-9 (Version None)
Quarter: 2012Q2

REPORT INFORMATION
  Report Type: 
  Country: None (occurrence: None)
  Receive Date: 20120523
  Receipt Date: 20120511
  Transmission Date: 20120825
  Serious: Yes (Hospitalization, Other)
  Sender: FDA-Public Use
  Company Number: US-SANOFI-AVENTIS-2012SA034390

PATIENT
  Age: 76 Year
  Sex: Female
  Weight: 84.1 kg

DRUGS (12)
  1. AMBIEN [Suspect]
  2. SIMVASTATIN [Concomitant]
  3. DABIGATRAN ETEXILATE [Concomitant]
     Indication: ANTICOAGULANT THERAPY
  4. AMBIEN [Suspect]
  5. COUMADIN [Concomitant]
     Indication: THROMBOSIS PROPHYLAXIS
  6. SEROQUEL [Suspect]
     Indication: DEPRESSION
  7. SINGULAIR [Concomitant]
  8. AMBIEN [Suspect]
     Dates: end: 20120425
  9. AMBIEN [Suspect]
     Dates: end: 20120425
  10. WELLBUTRIN [Concomitant]
     Indication: DEPRESSION
  11. SEROQUEL [Suspect]
  12. LOPRESSOR [Concomitant]

REACTIONS (9)
  - ABDOMINAL DISCOMFORT [None]
  - DYSPEPSIA [None]
  - DIZZINESS [None]
  - HEADACHE [None]
  - WITHDRAWAL SYNDROME [None]
  - INSOMNIA [None]
  - APHAGIA [None]
  - SINUSITIS [None]
  - FEELING ABNORMAL [None]
